FAERS Safety Report 24956376 (Version 1)
Quarter: 2025Q1

REPORT INFORMATION
  Report Type: Spontaneous
  Country: US (occurrence: None)
  Receive Date: 20250211
  Receipt Date: 20250211
  Transmission Date: 20250408
  Serious: No
  Sender: FDA-CTU
  Company Number: None

PATIENT
  Age: 39 Year
  Sex: Female

DRUGS (5)
  1. DIMETHYL FUMARATE [Suspect]
     Active Substance: DIMETHYL FUMARATE
     Indication: Multiple sclerosis
  2. MAVYRET [Suspect]
     Active Substance: GLECAPREVIR\PIBRENTASVIR
     Indication: Multiple sclerosis
     Dosage: FREQUENCY : TWICE A DAY;?
     Dates: start: 20250121, end: 20250201
  3. MAVYRET [Concomitant]
     Active Substance: GLECAPREVIR\PIBRENTASVIR
  4. TOPAMAX [Concomitant]
     Active Substance: TOPIRAMATE
  5. METHADONE [Concomitant]
     Active Substance: METHADONE HYDROCHLORIDE

REACTIONS (5)
  - Skin burning sensation [None]
  - Eczema [None]
  - Rash [None]
  - Skin erosion [None]
  - Rash macular [None]

NARRATIVE: CASE EVENT DATE: 20250201
